FAERS Safety Report 16047310 (Version 1)
Quarter: 2019Q1

REPORT INFORMATION
  Report Type: Spontaneous
  Country: US (occurrence: US)
  Receive Date: 20190307
  Receipt Date: 20190307
  Transmission Date: 20190418
  Serious: Yes (Other)
  Sender: FDA-Public Use
  Company Number: US-NAPPMUNDI-USA-2019-0146265

PATIENT
  Age: 75 Year
  Sex: Male
  Weight: 94.33 kg

DRUGS (4)
  1. PRIMIDONE. [Concomitant]
     Active Substance: PRIMIDONE
     Indication: FEELING JITTERY
     Dosage: 40 MG, BID PRN
     Route: 048
  2. OXYCODONE HYDROCHLORIDE (SIMILAR TO NDA 22-272) [Suspect]
     Active Substance: OXYCODONE HYDROCHLORIDE
     Indication: PRODUCT USED FOR UNKNOWN INDICATION
     Dosage: 6 TABLET, DAILY
     Route: 048
  3. VITAMIN B12 [Concomitant]
     Active Substance: CYANOCOBALAMIN
     Indication: VITAMIN B12 DEFICIENCY
  4. PRIMIDONE. [Concomitant]
     Active Substance: PRIMIDONE
     Indication: MUSCLE SPASMS

REACTIONS (3)
  - Non-Hodgkin^s lymphoma stage II [Unknown]
  - Carotid artery stent insertion [Unknown]
  - Cataract operation [Unknown]

NARRATIVE: CASE EVENT DATE: 201802
